FAERS Safety Report 16541125 (Version 6)
Quarter: 2024Q1

REPORT INFORMATION
  Report Type: Spontaneous
  Country: IT (occurrence: IT)
  Receive Date: 20190708
  Receipt Date: 20240320
  Transmission Date: 20240410
  Serious: Yes (Other)
  Sender: FDA-Public Use
  Company Number: IT-AMGEN-ITASP2019105750

PATIENT
  Age: 63 Year
  Sex: Female
  Weight: 62 kg

DRUGS (45)
  1. TRASTUZUMAB [Suspect]
     Active Substance: TRASTUZUMAB
     Indication: HER2 positive breast cancer
     Dosage: 8 MILLIGRAM/KILOGRAM, Q3WK
     Route: 041
     Dates: start: 20170131, end: 20170131
  2. TRASTUZUMAB [Suspect]
     Active Substance: TRASTUZUMAB
     Dosage: 6 MILLIGRAM/KILOGRAM, Q3WK
     Route: 042
     Dates: start: 20170224, end: 20171128
  3. TRASTUZUMAB [Suspect]
     Active Substance: TRASTUZUMAB
     Dosage: 600 MILLIGRAM, Q3WK
     Route: 041
     Dates: start: 20180727, end: 20180817
  4. TRASTUZUMAB [Suspect]
     Active Substance: TRASTUZUMAB
     Dosage: 600 MILLIGRAM/KILOGRAM, Q3WK
     Route: 042
     Dates: start: 20180811, end: 20181009
  5. TRASTUZUMAB [Suspect]
     Active Substance: TRASTUZUMAB
     Dosage: 6 MILLIGRAM/KILOGRAM, Q3WK
     Route: 042
     Dates: start: 20180811, end: 20181009
  6. PROLIA [Suspect]
     Active Substance: DENOSUMAB
     Indication: Product used for unknown indication
     Dosage: UNK
     Route: 065
     Dates: start: 20170823, end: 20180727
  7. LAPATINIB DITOSYLATE [Suspect]
     Active Substance: LAPATINIB DITOSYLATE
     Indication: HER2 positive breast cancer
     Dosage: 250 MILLIGRAM, Q3WK (FIVE TIMES A DAY)
     Route: 048
     Dates: start: 20171219, end: 20180330
  8. LAPATINIB DITOSYLATE [Suspect]
     Active Substance: LAPATINIB DITOSYLATE
     Indication: Breast cancer
     Dosage: 250 MILLIGRAM, Q3WK
     Route: 048
     Dates: start: 20180216, end: 20180222
  9. LAPATINIB DITOSYLATE [Suspect]
     Active Substance: LAPATINIB DITOSYLATE
     Dosage: 250 MILLIGRAM  (THREE TIMES A DAY)
     Route: 048
     Dates: start: 20180223, end: 20180302
  10. LAPATINIB DITOSYLATE [Suspect]
     Active Substance: LAPATINIB DITOSYLATE
     Dosage: 250 MILLIGRAM, Q3WK (FOUR TIMES A DAY)
     Route: 048
     Dates: start: 20180303, end: 201803
  11. LAPATINIB DITOSYLATE [Suspect]
     Active Substance: LAPATINIB DITOSYLATE
     Dosage: 250 MILLIGRAM  (FOUR TIMES A DAY)
     Route: 048
     Dates: start: 201803, end: 201803
  12. LAPATINIB DITOSYLATE [Suspect]
     Active Substance: LAPATINIB DITOSYLATE
     Dosage: 250 MILLIGRAM  (FOUR TIMES A DAY)
     Route: 048
     Dates: start: 20180330, end: 20180720
  13. PERTUZUMAB [Suspect]
     Active Substance: PERTUZUMAB
     Indication: HER2 positive breast cancer
     Dosage: 840 MILLIGRAM, Q3WK
     Route: 042
     Dates: start: 20170131, end: 20170224
  14. PERTUZUMAB [Suspect]
     Active Substance: PERTUZUMAB
     Indication: Breast cancer
     Dosage: 420 MILLIGRAM, Q3WK
     Route: 042
     Dates: start: 20170224, end: 20171128
  15. PERTUZUMAB [Suspect]
     Active Substance: PERTUZUMAB
     Dosage: 840 MILLIGRAM, Q3WK
     Route: 042
     Dates: start: 20170131, end: 20170131
  16. PACLITAXEL [Suspect]
     Active Substance: PACLITAXEL
     Indication: Breast cancer
     Dosage: 110 MILLIGRAM/SQ. METER, QWK
     Route: 042
     Dates: start: 20170210
  17. PACLITAXEL [Suspect]
     Active Substance: PACLITAXEL
     Dosage: 80 MILLIGRAM/SQ. METER, QWK
     Route: 042
     Dates: start: 20170224
  18. PACLITAXEL [Suspect]
     Active Substance: PACLITAXEL
     Dosage: 85 MILLIGRAM/SQ. METER, QWK
     Route: 042
     Dates: start: 20170418
  19. PACLITAXEL [Suspect]
     Active Substance: PACLITAXEL
     Dosage: 95 MILLIGRAM/SQ. METER, QWK
     Route: 042
     Dates: start: 20170426, end: 20170628
  20. PACLITAXEL [Suspect]
     Active Substance: PACLITAXEL
     Dosage: 85 MILLIGRAM/SQ. METER, QWK
     Route: 042
     Dates: start: 20170705, end: 20170719
  21. PACLITAXEL [Suspect]
     Active Substance: PACLITAXEL
     Dosage: 110 MILLIGRAM/SQ. METER, QWK
     Route: 042
     Dates: start: 20170731
  22. PACLITAXEL [Suspect]
     Active Substance: PACLITAXEL
     Dosage: 115 MILLIGRAM, QWK
     Route: 042
     Dates: start: 20170224, end: 20170403
  23. PACLITAXEL [Suspect]
     Active Substance: PACLITAXEL
     Dosage: 110 MILLIGRAM/SQ. METER, QWK
     Route: 042
     Dates: start: 20170131, end: 20170210
  24. AROMASIN [Suspect]
     Active Substance: EXEMESTANE
     Indication: HER2 positive breast cancer
     Dosage: 25 MILLIGRAM, QD
     Route: 048
     Dates: start: 20170726, end: 20171219
  25. AROMASIN [Suspect]
     Active Substance: EXEMESTANE
     Indication: Breast cancer
  26. TAXOL [Suspect]
     Active Substance: PACLITAXEL
     Indication: HER2 positive breast cancer
     Dosage: 110 MILLIGRAM, QWK
     Route: 042
     Dates: start: 20170131, end: 20170705
  27. CAPECITABINE [Suspect]
     Active Substance: CAPECITABINE
     Indication: HER2 positive breast cancer
     Dosage: 3000 MILLIGRAM, QD
     Route: 048
     Dates: start: 20171220, end: 20180119
  28. CAPECITABINE [Suspect]
     Active Substance: CAPECITABINE
     Indication: Breast cancer
     Dosage: 1500 MILLIGRAM, Q3WK
     Route: 048
     Dates: start: 20180119, end: 20180709
  29. CAPECITABINE [Suspect]
     Active Substance: CAPECITABINE
     Dosage: 1500 MILLIGRAM, 0.5 DAY
     Route: 048
     Dates: start: 20171220, end: 20180108
  30. VINORELBINE [Suspect]
     Active Substance: VINORELBINE TARTRATE
     Indication: Breast cancer
     Dosage: 80 MILLIGRAM, Q3WK
     Route: 048
     Dates: end: 20180911
  31. VINORELBINE [Suspect]
     Active Substance: VINORELBINE TARTRATE
     Dosage: 60 MILLIGRAM/SQ. METER, Q3WK
     Route: 048
     Dates: start: 20180727, end: 20180817
  32. VINORELBINE [Suspect]
     Active Substance: VINORELBINE TARTRATE
     Dosage: 80 MILLIGRAM
     Route: 048
     Dates: start: 20181106
  33. EXEMESTANE [Suspect]
     Active Substance: EXEMESTANE
     Indication: Breast cancer
     Dosage: 25 MILLIGRAM, QD
     Route: 048
     Dates: start: 20170726, end: 20171219
  34. AMLODIPINE BESYLATE\OLMESARTAN MEDOXOMIL [Concomitant]
     Active Substance: AMLODIPINE BESYLATE\OLMESARTAN MEDOXOMIL
     Dosage: UNK
     Dates: start: 20171004
  35. SERTRALINE [Concomitant]
     Active Substance: SERTRALINE HYDROCHLORIDE
     Dosage: UNK
  36. CHOLECALCIFEROL [Concomitant]
     Active Substance: CHOLECALCIFEROL
     Dosage: UNK
     Dates: start: 20170726
  37. MEDROL [Concomitant]
     Active Substance: METHYLPREDNISOLONE
     Dosage: UNK
     Dates: start: 20180720, end: 20180724
  38. MEDROL [Concomitant]
     Active Substance: METHYLPREDNISOLONE
     Dosage: UNK
     Dates: start: 20180725, end: 20180731
  39. XANAX [Concomitant]
     Active Substance: ALPRAZOLAM
     Dosage: 1 DOSAGE FORM
     Route: 042
     Dates: start: 20170131
  40. BECLOMETHASONE DIPROPIONATE [Concomitant]
     Active Substance: BECLOMETHASONE DIPROPIONATE
     Indication: Product used for unknown indication
     Dosage: UNK
     Dates: start: 20170702, end: 20170705
  41. AMBROXOL HYDROCHLORIDE [Concomitant]
     Active Substance: AMBROXOL HYDROCHLORIDE
     Indication: Product used for unknown indication
     Dosage: UNK
     Dates: start: 20170702, end: 20170705
  42. IMODIUM [Concomitant]
     Active Substance: LOPERAMIDE HYDROCHLORIDE
     Indication: Product used for unknown indication
     Dosage: UNK
     Dates: start: 20170705, end: 20170821
  43. ZOFRAN [Concomitant]
     Active Substance: ONDANSETRON HYDROCHLORIDE
     Dosage: UNK
  44. GABAPENTIN [Concomitant]
     Active Substance: GABAPENTIN
     Dosage: UNK
  45. BETAMETHASONE SODIUM PHOSPHATE [Concomitant]
     Active Substance: BETAMETHASONE SODIUM PHOSPHATE
     Dosage: UNK

REACTIONS (9)
  - Malaise [Recovered/Resolved]
  - Diarrhoea [Recovered/Resolved]
  - Diarrhoea [Recovered/Resolved]
  - Hypokalaemia [Recovered/Resolved]
  - Hypokalaemia [Recovered/Resolved]
  - Hypokalaemia [Recovered/Resolved]
  - Hypokalaemia [Recovered/Resolved]
  - Asthenia [Recovered/Resolved]
  - Off label use [Unknown]

NARRATIVE: CASE EVENT DATE: 20180108
